FAERS Safety Report 6079361-6 (Version None)
Quarter: 2009Q1

REPORT INFORMATION
  Report Type: 
  Country: None (occurrence: None)
  Receive Date: 20090216
  Receipt Date: 20090210
  Transmission Date: 20090719
  Serious: Yes (Death, Other)
  Sender: FDA-Public Use
  Company Number: CA-ELI_LILLY_AND_COMPANY-CA200902002106

PATIENT
  Sex: Male

DRUGS (1)
  1. XIGRIS [Suspect]

REACTIONS (3)
  - CONVULSION [None]
  - DEATH [None]
  - RESPIRATORY FAILURE [None]
